FAERS Safety Report 12541021 (Version 2)
Quarter: 2016Q3

REPORT INFORMATION
  Report Type: Spontaneous
  Country: US (occurrence: US)
  Receive Date: 20160708
  Receipt Date: 20160907
  Transmission Date: 20161109
  Serious: No
  Sender: FDA-Public Use
  Company Number: US-JNJFOC-20160702781

PATIENT
  Sex: Female
  Weight: 47.63 kg

DRUGS (1)
  1. DURAGESIC [Suspect]
     Active Substance: FENTANYL
     Indication: PAIN
     Dosage: 50 AND 75 MICROGRAMS IN 2, 2.5 DAYS AS NEEDED
     Route: 062
     Dates: start: 1990

REACTIONS (9)
  - Insomnia [Not Recovered/Not Resolved]
  - Wrong technique in product usage process [Unknown]
  - Product adhesion issue [Not Recovered/Not Resolved]
  - Drug dose omission [Unknown]
  - Hot flush [Unknown]
  - Drug ineffective [Not Recovered/Not Resolved]
  - Drug administered at inappropriate site [Unknown]
  - Pruritus [Not Recovered/Not Resolved]
  - Medication error [Unknown]
